FAERS Safety Report 7476047-8 (Version None)
Quarter: 2011Q2

REPORT INFORMATION
  Report Type: 
  Country: None (occurrence: None)
  Receive Date: 20110505
  Receipt Date: 20110425
  Transmission Date: 20111010
  Serious: Yes (Hospitalization, Other)
  Sender: FDA-Public Use
  Company Number: TRP_07699_2011

PATIENT
  Sex: Female
  Weight: 49.8957 kg

DRUGS (2)
  1. RIBAVIRIN [Suspect]
     Indication: HEPATITIS
     Dates: start: 20100620, end: 20101129
  2. PEG-INTRON [Suspect]
     Indication: HEPATITIS
     Dates: start: 20100620, end: 20101129

REACTIONS (13)
  - BACTERIAL INFECTION [None]
  - DISEASE PROGRESSION [None]
  - ALOPECIA [None]
  - OROPHARYNGEAL PAIN [None]
  - LOSS OF CONSCIOUSNESS [None]
  - HEPATITIS C VIRUS TEST POSITIVE [None]
  - ASTHENIA [None]
  - HEAD INJURY [None]
  - SKIN MASS [None]
  - MACULAR DEGENERATION [None]
  - WEIGHT DECREASED [None]
  - CONDITION AGGRAVATED [None]
  - SPEECH DISORDER [None]
